FAERS Safety Report 24894012 (Version 1)
Quarter: 2025Q1

REPORT INFORMATION
  Report Type: Report from Study
  Country: TR (occurrence: TR)
  Receive Date: 20250128
  Receipt Date: 20250128
  Transmission Date: 20250409
  Serious: Yes (Hospitalization, Other)
  Sender: RANBAXY
  Company Number: TR-SUN PHARMACEUTICAL INDUSTRIES LTD-2025R1-490566

PATIENT
  Age: 81 Year
  Sex: Male

DRUGS (2)
  1. PIPERACILLIN SODIUM\TAZOBACTAM SODIUM [Suspect]
     Active Substance: PIPERACILLIN SODIUM\TAZOBACTAM SODIUM
     Indication: Antibiotic therapy
     Route: 065
  2. CLINDAMYCIN [Suspect]
     Active Substance: CLINDAMYCIN
     Indication: Antibiotic therapy
     Route: 065

REACTIONS (1)
  - Condition aggravated [Unknown]
